FAERS Safety Report 6329292-9 (Version None)
Quarter: 2009Q3

REPORT INFORMATION
  Report Type: 
  Country: None (occurrence: None)
  Receive Date: 20090826
  Receipt Date: 20090824
  Transmission Date: 20100115
  Serious: No
  Sender: FDA-Public Use
  Company Number: KR-ELI_LILLY_AND_COMPANY-KR200908003630

PATIENT
  Sex: Female
  Weight: 40 kg

DRUGS (6)
  1. PEMETREXED [Suspect]
     Indication: NON-SMALL CELL LUNG CANCER
     Dosage: 700MG (500MG/M2) ON DAY 1
     Route: 042
     Dates: start: 20071220
  2. FOLIC ACID [Concomitant]
     Indication: SUPPLEMENTATION THERAPY
     Dosage: 1 MG, UNKNOWN
     Route: 048
     Dates: start: 20071211, end: 20080604
  3. VITAMIN B-12 [Concomitant]
     Indication: SUPPLEMENTATION THERAPY
     Dosage: 1 MG, UNK
     Route: 042
     Dates: start: 20071211, end: 20080402
  4. OXYCODON [Concomitant]
     Indication: PAIN
     Dosage: 5 MG, UNK
     Dates: start: 20070905, end: 20080527
  5. OXYCONTIN [Concomitant]
     Indication: PAIN
     Dosage: 20 MG, UNK
     Dates: start: 20070905, end: 20080527
  6. DURAGESIC-100 [Concomitant]
     Indication: PAIN
     Dosage: 75 UG, EVERY HOUR
     Route: 062
     Dates: start: 20070905, end: 20080527

REACTIONS (1)
  - PNEUMONIA [None]
